FAERS Safety Report 8342738-X (Version None)
Quarter: 2012Q2

REPORT INFORMATION
  Report Type: 
  Country: None (occurrence: None)
  Receive Date: 20120503
  Receipt Date: 20101109
  Transmission Date: 20120825
  Serious: Yes (Hospitalization)
  Sender: FDA-Public Use
  Company Number: GB-021435

PATIENT
  Age: 86 Year
  Sex: Male

DRUGS (1)
  1. (CHLORAMBUCIL) [Suspect]
     Indication: CHRONIC LYMPHOCYTIC LEUKAEMIA
     Dosage: 10 MG/M2 ON DAYS 1-7 EVERY 28 DAYS ORAL
     Route: 048
     Dates: start: 20100826

REACTIONS (4)
  - PLEURAL EFFUSION [None]
  - CONNECTIVE TISSUE DISORDER [None]
  - LYMPHOCYTIC INFILTRATION [None]
  - TUBERCULOSIS [None]
